FAERS Safety Report 8195559 (Version 5)
Quarter: 2025Q4

REPORT INFORMATION
  Report Type: Spontaneous
  Country: US (occurrence: US)
  Receive Date: 20111024
  Receipt Date: 20251224
  Transmission Date: 20260117
  Serious: No
  Sender: ROCHE
  Company Number: US-ROCHE-1005972

PATIENT
  Age: 83 Year
  Sex: Female

DRUGS (4)
  1. BONIVA [Suspect]
     Active Substance: IBANDRONATE SODIUM
     Indication: Osteoporosis
     Route: 048
     Dates: start: 201107
  2. ATENOLOL [Concomitant]
     Active Substance: ATENOLOL
  3. BENICAR [Concomitant]
     Active Substance: OLMESARTAN MEDOXOMIL
  4. WARFARIN [Concomitant]
     Active Substance: WARFARIN

REACTIONS (3)
  - Pain in jaw [Not Recovered/Not Resolved]
  - Trismus [Not Recovered/Not Resolved]
  - Ear pain [Not Recovered/Not Resolved]

NARRATIVE: CASE EVENT DATE: 20110801
